FAERS Safety Report 25654998 (Version 1)
Quarter: 2025Q3

REPORT INFORMATION
  Report Type: Spontaneous
  Country: US (occurrence: US)
  Receive Date: 20250807
  Receipt Date: 20250807
  Transmission Date: 20251021
  Serious: Yes (Life-Threatening, Hospitalization, Other)
  Sender: ORYZA PHARMACEUTICALS
  Company Number: US-ORYZAPHARMA-2025ORYLIT-00009

PATIENT
  Age: 42 Year
  Sex: Male

DRUGS (18)
  1. DEXTROAMPHETAMINE SACCHARATE, AMPHETAMINE ASPARTATE, DEXTROAMPHETAMINE [Suspect]
     Active Substance: AMPHETAMINE ASPARTATE\AMPHETAMINE SULFATE\DEXTROAMPHETAMINE SACCHARATE\DEXTROAMPHETAMINE SULFATE
     Indication: Depression
  2. PSILOCYBIN [Suspect]
     Active Substance: PSILOCYBIN
     Indication: Depression
  3. PSILOCYBIN [Suspect]
     Active Substance: PSILOCYBIN
  4. TRANYLCYPROMINE [Suspect]
     Active Substance: TRANYLCYPROMINE
     Indication: Depression
  5. TRANYLCYPROMINE [Suspect]
     Active Substance: TRANYLCYPROMINE
  6. TRANYLCYPROMINE [Suspect]
     Active Substance: TRANYLCYPROMINE
  7. TRANYLCYPROMINE [Suspect]
     Active Substance: TRANYLCYPROMINE
  8. TRANYLCYPROMINE [Suspect]
     Active Substance: TRANYLCYPROMINE
  9. ATORVASTATIN [Concomitant]
     Active Substance: ATORVASTATIN
     Indication: Product used for unknown indication
  10. FENOFIBRATE [Concomitant]
     Active Substance: FENOFIBRATE
  11. GLIPIZIDE [Concomitant]
     Active Substance: GLIPIZIDE
     Indication: Product used for unknown indication
  12. LIRAGLUTIDE [Concomitant]
     Active Substance: LIRAGLUTIDE
     Indication: Product used for unknown indication
     Route: 058
  13. METFORMIN [Concomitant]
     Active Substance: METFORMIN HYDROCHLORIDE
     Indication: Product used for unknown indication
  14. OMEPRAZOLE [Concomitant]
     Active Substance: OMEPRAZOLE
     Indication: Product used for unknown indication
  15. PROPRANOLOL [Concomitant]
     Active Substance: PROPRANOLOL HYDROCHLORIDE
  16. VALPROATE [Concomitant]
     Active Substance: VALPROIC ACID
     Indication: Product used for unknown indication
     Dosage: EXTENDED RELEASE
  17. ZOLPIDEM [Concomitant]
     Active Substance: ZOLPIDEM TARTRATE
     Indication: Product used for unknown indication
  18. Elemental Lithium [Concomitant]
     Indication: Product used for unknown indication

REACTIONS (3)
  - Hypertensive emergency [Recovered/Resolved]
  - Drug interaction [Recovered/Resolved]
  - Acute coronary syndrome [None]
